FAERS Safety Report 8141000-8 (Version None)
Quarter: 2012Q1

REPORT INFORMATION
  Report Type: 
  Country: None (occurrence: None)
  Receive Date: 20120216
  Receipt Date: 20120203
  Transmission Date: 20120608
  Serious: Yes (Other)
  Sender: FDA-Public Use
  Company Number: GB-ASTELLAS-2012US001775

PATIENT
  Sex: Male

DRUGS (1)
  1. AMBISOME [Suspect]
     Indication: PROPHYLAXIS
     Dosage: 2 MG/KG, UID/QD
     Route: 042
     Dates: start: 20120104

REACTIONS (4)
  - PALLOR [None]
  - RASH [None]
  - SWELLING FACE [None]
  - ABDOMINAL PAIN [None]
